FAERS Safety Report 20114773 (Version 1)
Quarter: 2021Q4

REPORT INFORMATION
  Report Type: Spontaneous
  Country: CN (occurrence: CN)
  Receive Date: 20211125
  Receipt Date: 20211125
  Transmission Date: 20220303
  Serious: Yes (Hospitalization, Other)
  Sender: FDA-Public Use
  Company Number: CN-NAPPMUNDI-GBR-2021-0092829

PATIENT
  Age: 12 Year
  Sex: Male
  Weight: 28 kg

DRUGS (2)
  1. OXYCONTIN [Suspect]
     Active Substance: OXYCODONE HYDROCHLORIDE
     Indication: Analgesic therapy
     Dosage: 40 MG, Q12H
     Route: 048
     Dates: start: 20210827, end: 20210915
  2. MORPHINE HYDROCHLORIDE [Suspect]
     Active Substance: MORPHINE HYDROCHLORIDE
     Indication: Analgesic therapy
     Dosage: 20 MG, DAILY
     Route: 048
     Dates: start: 20210912, end: 20210913

REACTIONS (2)
  - Abdominal distension [Recovering/Resolving]
  - Urinary retention [Recovering/Resolving]

NARRATIVE: CASE EVENT DATE: 20210914
